FAERS Safety Report 5650548-7 (Version None)
Quarter: 2008Q1

REPORT INFORMATION
  Report Type: 
  Country: None (occurrence: None)
  Receive Date: 20080305
  Receipt Date: 20080220
  Transmission Date: 20080703
  Serious: Yes (Other)
  Sender: FDA-Public Use
  Company Number: US-AMGEN-US263416

PATIENT
  Sex: Male

DRUGS (4)
  1. PROCRIT [Suspect]
     Indication: RENAL FAILURE CHRONIC
     Route: 058
     Dates: start: 20040920
  2. SULFAMETHOXAZOLE [Concomitant]
     Dates: start: 20071212, end: 20080112
  3. PROGRAF [Concomitant]
     Dates: start: 20040101
  4. SORIATANE [Concomitant]
     Dates: start: 20050101

REACTIONS (2)
  - BONE MARROW FAILURE [None]
  - THERAPEUTIC RESPONSE DECREASED [None]
